FAERS Safety Report 9079268 (Version 1)
Quarter: 2013Q1

REPORT INFORMATION
  Report Type: Report from Study
  Country: US (occurrence: US)
  Receive Date: 20130130
  Receipt Date: 20130130
  Transmission Date: 20140127
  Serious: No
  Sender: FDA-Public Use
  Company Number: US-ABBOTT-12P-163-0960215-00

PATIENT
  Sex: Female
  Weight: 43.13 kg

DRUGS (5)
  1. HUMIRA 40 MG/0.8 ML PEN [Suspect]
     Indication: CROHN^S DISEASE
     Dates: start: 20120710, end: 20120710
  2. ENTOCORT [Concomitant]
     Indication: CROHN^S DISEASE
  3. IRON [Concomitant]
     Indication: MINERAL SUPPLEMENTATION
  4. MULTIVITAMIN [Concomitant]
     Indication: VITAMIN SUPPLEMENTATION
  5. PENTASA [Concomitant]
     Indication: CROHN^S DISEASE

REACTIONS (3)
  - Incorrect dose administered [Recovered/Resolved]
  - Injection site pain [Recovered/Resolved]
  - Injection site bruising [Recovered/Resolved]
